FAERS Safety Report 7053815-8 (Version None)
Quarter: 2010Q4

REPORT INFORMATION
  Report Type: 
  Country: None (occurrence: None)
  Receive Date: 20101020
  Receipt Date: 20101007
  Transmission Date: 20110411
  Serious: Yes (Other)
  Sender: FDA-Public Use
  Company Number: GB-WATSON-2010-11350

PATIENT
  Age: 46 Year
  Sex: Female
  Weight: 82 kg

DRUGS (4)
  1. SERTRALINE HYDROCHLORIDE [Suspect]
     Indication: DEPRESSION
     Dosage: 100 MG, UNKNOWN
     Route: 048
     Dates: start: 20100317, end: 20100804
  2. SERTRALINE HYDROCHLORIDE [Suspect]
     Dosage: 50 MG, UNKNOWN
     Route: 048
     Dates: start: 20100305, end: 20100402
  3. CITALOPRAM HYDROBROMIDE [Concomitant]
     Indication: DEPRESSION
     Dosage: 20 MG, UNK
     Route: 048
     Dates: start: 20100125, end: 20100222
  4. CITALOPRAM HYDROBROMIDE [Concomitant]
     Dosage: 10 MG, UNK
     Route: 048
     Dates: start: 20100116, end: 20100125

REACTIONS (1)
  - COLITIS COLLAGENOUS [None]
